FAERS Safety Report 4489620-6 (Version None)
Quarter: 2004Q4

REPORT INFORMATION
  Report Type: 
  Country: None (occurrence: None)
  Receive Date: 20041028
  Receipt Date: 20041018
  Transmission Date: 20050328
  Serious: Yes (Death)
  Sender: FDA-Public Use
  Company Number: S04-USA-07052-01

PATIENT
  Age: 93 Year
  Sex: Male

DRUGS (7)
  1. NAMENDA [Suspect]
     Indication: DEMENTIA ALZHEIMER'S TYPE
     Dosage: 10 MG BID PO
     Route: 048
  2. DILANTIN [Concomitant]
  3. EXELON [Concomitant]
  4. PLAVIX [Concomitant]
  5. PEPCID [Concomitant]
  6. FIBERCON (POLYCARBOPHIL CALCIUM) [Concomitant]
  7. IRON [Concomitant]

REACTIONS (3)
  - CONVULSION [None]
  - LETHARGY [None]
  - PRODUCTIVE COUGH [None]
